FAERS Safety Report 14496569 (Version 2)
Quarter: 2018Q1

REPORT INFORMATION
  Report Type: Spontaneous
  Country: IS (occurrence: IS)
  Receive Date: 20180207
  Receipt Date: 20180209
  Transmission Date: 20180509
  Serious: Yes (Other)
  Sender: FDA-Public Use
  Company Number: IS-SA-2018SA020951

PATIENT
  Age: 61 Year
  Sex: Female

DRUGS (5)
  1. VALPRESS [Concomitant]
     Route: 048
  2. AUBAGIO [Suspect]
     Active Substance: TERIFLUNOMIDE
     Indication: RELAPSING-REMITTING MULTIPLE SCLEROSIS
     Route: 048
     Dates: start: 20170406
  3. KEPPRA [Concomitant]
     Active Substance: LEVETIRACETAM
     Route: 048
  4. ATOCOR [Concomitant]
     Active Substance: ATORVASTATIN
     Route: 048
  5. VAGIFEM [Concomitant]
     Active Substance: ESTRADIOL
     Dosage: THREE TIMES PER WEEK
     Route: 067

REACTIONS (3)
  - JC polyomavirus test positive [Unknown]
  - Lymphopenia [Not Recovered/Not Resolved]
  - Leukopenia [Unknown]

NARRATIVE: CASE EVENT DATE: 20170420
